FAERS Safety Report 23137934 (Version 1)
Quarter: 2023Q4

REPORT INFORMATION
  Report Type: Spontaneous
  Country: US (occurrence: None)
  Receive Date: 20231101
  Receipt Date: 20231101
  Transmission Date: 20240109
  Serious: Yes (Other)
  Sender: FDA-Public Use
  Company Number: None

PATIENT
  Age: 66 Year
  Sex: Female

DRUGS (3)
  1. AMBRISENTAN [Suspect]
     Active Substance: AMBRISENTAN
     Indication: Pulmonary arterial hypertension
     Dosage: FREQUENCY : DAILY;?
     Route: 048
     Dates: start: 20220923
  2. TADALAFIL [Suspect]
     Active Substance: TADALAFIL
  3. ORENITRAM [Suspect]
     Active Substance: TREPROSTINIL

REACTIONS (7)
  - Myalgia [None]
  - Nausea [None]
  - Vomiting [None]
  - Diarrhoea [None]
  - Drug tolerance [None]
  - Chest pain [None]
  - Liver function test increased [None]

NARRATIVE: CASE EVENT DATE: 20231013
